FAERS Safety Report 5036657-4 (Version None)
Quarter: 2006Q2

REPORT INFORMATION
  Report Type: 
  Country: None (occurrence: None)
  Receive Date: 20060601
  Receipt Date: 20060405
  Transmission Date: 20061013
  Serious: No
  Sender: FDA-Public Use
  Company Number: US200604000739

PATIENT
  Age: 81 Year
  Sex: Male

DRUGS (3)
  1. CYMBALTA [Suspect]
     Indication: NEUROPATHY
     Dosage: 20 MG, DAILY (1/D)
     Dates: start: 20060301, end: 20060301
  2. AVODART [Concomitant]
  3. LIPITOR [Concomitant]

REACTIONS (5)
  - AGITATION [None]
  - ANXIETY [None]
  - CONFUSIONAL STATE [None]
  - DIZZINESS [None]
  - HALLUCINATION [None]
